FAERS Safety Report 10636766 (Version 3)
Quarter: 2015Q1

REPORT INFORMATION
  Report Type: Report from Study
  Country: NL (occurrence: NL)
  Receive Date: 20141208
  Receipt Date: 20150324
  Transmission Date: 20150720
  Serious: Yes (Other)
  Sender: FDA-Public Use
  Company Number: NL-AMGEN-NLDSL2014094451

PATIENT
  Age: 72 Year
  Sex: Female

DRUGS (1)
  1. XGEVA [Suspect]
     Active Substance: DENOSUMAB
     Indication: PRODUCT USED FOR UNKNOWN INDICATION
     Dosage: 500 MUG, Q4WK
     Route: 058
     Dates: start: 2013

REACTIONS (3)
  - Sleep disorder due to general medical condition, insomnia type [Unknown]
  - Pain in jaw [Unknown]
  - Fatigue [Unknown]

NARRATIVE: CASE EVENT DATE: 20141126
